FAERS Safety Report 9611802 (Version 1)
Quarter: 2013Q4

REPORT INFORMATION
  Report Type: Spontaneous
  Country: GB (occurrence: GB)
  Receive Date: 20131010
  Receipt Date: 20131010
  Transmission Date: 20140711
  Serious: Yes (Other)
  Sender: FDA-Public Use
  Company Number: GB-AMGEN-GBRSP2013071297

PATIENT
  Age: 56 Year
  Sex: Female

DRUGS (1)
  1. ENBREL [Suspect]
     Indication: PRODUCT USED FOR UNKNOWN INDICATION
     Dosage: UNK
     Route: 065

REACTIONS (7)
  - Feeling abnormal [Unknown]
  - Pain [Unknown]
  - Thirst [Unknown]
  - Pollakiuria [Unknown]
  - Nocturia [Unknown]
  - Injection site bruising [Unknown]
  - Lower respiratory tract infection [Unknown]
